FAERS Safety Report 20671871 (Version 1)
Quarter: 2022Q2

REPORT INFORMATION
  Report Type: Report from Study
  Country: US (occurrence: US)
  Receive Date: 20220405
  Receipt Date: 20220405
  Transmission Date: 20220721
  Serious: Yes (Death, Other)
  Sender: FDA-Public Use
  Company Number: US-ACADIA PHARMACEUTICALS INC.-ACA-2022-PIM-000902

PATIENT
  Age: 72 Year
  Sex: Male

DRUGS (9)
  1. NUPLAZID [Suspect]
     Active Substance: PIMAVANSERIN TARTRATE
     Indication: Parkinson^s disease
     Dosage: 34 MILLIGRAM, QD
     Route: 048
     Dates: start: 20200929, end: 20220307
  2. APRISO [Concomitant]
     Active Substance: MESALAMINE
     Dosage: 0.375 GM
  3. ATORVASTATIN [Concomitant]
     Active Substance: ATORVASTATIN
     Dosage: 10 MILLIGRAM
  4. AZILECT [Concomitant]
     Active Substance: RASAGILINE MESYLATE
     Dosage: 1 MILLIGRAM
  5. HUMIRA [Concomitant]
     Active Substance: ADALIMUMAB
     Dosage: 40/0.4ML, PEN INJECTION
  6. VITAMINS NOS [Concomitant]
     Active Substance: VITAMINS
  7. STALEVO [Concomitant]
     Active Substance: CARBIDOPA\ENTACAPONE\LEVODOPA
     Dosage: 150 (UNKNOWN UNITS)
  8. TELMISARTAN [Concomitant]
     Active Substance: TELMISARTAN
     Dosage: 40 MILLIGRAM
  9. UROCIT-K [Concomitant]
     Active Substance: POTASSIUM CITRATE
     Dosage: UROCIT-K 10 TAB

REACTIONS (1)
  - Death [Recovered/Resolved]

NARRATIVE: CASE EVENT DATE: 20220307
